FAERS Safety Report 5512959-X (Version None)
Quarter: 2007Q4

REPORT INFORMATION
  Report Type: 
  Country: None (occurrence: None)
  Receive Date: 20071112
  Receipt Date: 20071106
  Transmission Date: 20080405
  Serious: Yes (Disabling)
  Sender: FDA-Public Use
  Company Number: JP-MERCK-0711USA01912

PATIENT
  Age: 74 Year
  Sex: Female

DRUGS (4)
  1. COZAAR [Suspect]
     Indication: HYPERTENSION
     Route: 048
     Dates: start: 20060301, end: 20070922
  2. TRICHLON [Concomitant]
     Indication: HYPERTENSION
     Route: 048
     Dates: start: 20000801
  3. VITAMIN E NICOTINATE [Concomitant]
     Indication: HYPERTENSION
     Route: 048
     Dates: start: 20000801
  4. DIAZEPAM [Concomitant]
     Indication: HYPERTENSION
     Route: 048
     Dates: start: 20000801

REACTIONS (2)
  - ASTHMA [None]
  - COUGH [None]
